FAERS Safety Report 8421920-7 (Version None)
Quarter: 2012Q2

REPORT INFORMATION
  Report Type: 
  Country: None (occurrence: None)
  Receive Date: 20120608
  Receipt Date: 20120531
  Transmission Date: 20120825
  Serious: Yes (Other)
  Sender: FDA-Public Use
  Company Number: FI-ELI_LILLY_AND_COMPANY-FI201203006381

PATIENT
  Age: 67 Year
  Sex: Female

DRUGS (11)
  1. AMLODIPINE BESYLATE [Concomitant]
  2. ARAVA [Concomitant]
  3. SYMBICORT [Concomitant]
  4. CALCIUM CARBONATE [Concomitant]
  5. CORTISONE ACETATE [Concomitant]
     Indication: MUSCULOSKELETAL PAIN
  6. PLAVIX [Concomitant]
  7. MEDROL [Concomitant]
  8. BISOPROLOL FUMARATE [Concomitant]
  9. ATACAND [Concomitant]
  10. LIPITOR [Concomitant]
  11. FORTEO [Suspect]
     Indication: OSTEOPOROSIS
     Dosage: 20 UG, QD
     Route: 058
     Dates: start: 20100601, end: 20120401

REACTIONS (2)
  - CALCIPHYLAXIS [None]
  - ERYTHEMA [None]
